FAERS Safety Report 8081466-5 (Version None)
Quarter: 2012Q1

REPORT INFORMATION
  Report Type: 
  Country: None (occurrence: None)
  Receive Date: 20120130
  Receipt Date: 20120124
  Transmission Date: 20120608
  Serious: Yes (Hospitalization, Other)
  Sender: FDA-Public Use
  Company Number: US-PFIZER INC-2012020607

PATIENT
  Sex: Female
  Weight: 64.399 kg

DRUGS (3)
  1. EFFEXOR XR [Suspect]
     Indication: DEPRESSION
     Dosage: 225 MG, 1X/DAY
     Route: 048
  2. PROTONIX [Concomitant]
     Indication: PROPHYLAXIS
     Dosage: 40 MG, DAILY
  3. TOPAMAX [Concomitant]
     Indication: MIGRAINE
     Dosage: 50 MG, 2X/DAY

REACTIONS (15)
  - NEPHROLITHIASIS [None]
  - BLOOD COUNT ABNORMAL [None]
  - BLOOD GLUCOSE DECREASED [None]
  - HYPOTHYROIDISM [None]
  - MALAISE [None]
  - DEPRESSED MOOD [None]
  - PYREXIA [None]
  - SEPSIS [None]
  - WEIGHT DECREASED [None]
  - LOSS OF CONSCIOUSNESS [None]
  - CONVULSION [None]
  - HEAD INJURY [None]
  - HYPOTENSION [None]
  - MIDDLE INSOMNIA [None]
  - AMNESIA [None]
